FAERS Safety Report 25402028 (Version 1)
Quarter: 2025Q2

REPORT INFORMATION
  Report Type: Spontaneous
  Country: US (occurrence: None)
  Receive Date: 20250605
  Receipt Date: 20250605
  Transmission Date: 20250717
  Serious: No
  Sender: FDA-CTU
  Company Number: None

PATIENT
  Age: 26 Year
  Sex: Female
  Weight: 57.6 kg

DRUGS (4)
  1. ICY HOT [Suspect]
     Active Substance: LIDOCAINE\MENTHOL
     Indication: Back pain
     Dates: start: 20250605, end: 20250605
  2. ZEPBOUND [Concomitant]
     Active Substance: TIRZEPATIDE
  3. LEXAPRO [Concomitant]
     Active Substance: ESCITALOPRAM OXALATE
  4. FLONASE [Concomitant]
     Active Substance: FLUTICASONE PROPIONATE

REACTIONS (3)
  - Application site erythema [None]
  - Application site pain [None]
  - Application site pain [None]

NARRATIVE: CASE EVENT DATE: 20250605
